FAERS Safety Report 23695541 (Version 2)
Quarter: 2024Q2

REPORT INFORMATION
  Report Type: Spontaneous
  Country: AU (occurrence: AU)
  Receive Date: 20240402
  Receipt Date: 20240426
  Transmission Date: 20240716
  Serious: Yes (Other)
  Sender: FDA-Public Use
  Company Number: AU-SANDOZ-SDZ2024AU032226

PATIENT
  Age: 84 Year
  Sex: Male

DRUGS (12)
  1. CLARITHROMYCIN [Suspect]
     Active Substance: CLARITHROMYCIN
     Indication: Opportunistic infection prophylaxis
     Dosage: UNK
     Route: 065
  2. LINEZOLID [Suspect]
     Active Substance: LINEZOLID
     Indication: Mycobacterium chelonae infection
     Dosage: 600 MG, BID
     Route: 048
  3. CLOFAZIMINE [Suspect]
     Active Substance: CLOFAZIMINE
     Indication: Mycobacterium chelonae infection
     Dosage: 100 MG, QD
     Route: 048
  4. AMIKACIN [Suspect]
     Active Substance: AMIKACIN
     Indication: Mycobacterium chelonae infection
     Dosage: 500 MG THRICE WEEKLY
     Route: 042
  5. LEFLUNOMIDE [Concomitant]
     Active Substance: LEFLUNOMIDE
     Indication: Rheumatoid arthritis
     Dosage: UNK
     Route: 065
  6. LEFLUNOMIDE [Concomitant]
     Active Substance: LEFLUNOMIDE
     Indication: Mycobacterium chelonae infection
  7. SULFASALAZINE [Concomitant]
     Active Substance: SULFASALAZINE
     Indication: Rheumatoid arthritis
     Dosage: 1 G, QD
     Route: 048
  8. SULFASALAZINE [Concomitant]
     Active Substance: SULFASALAZINE
     Indication: Mycobacterium chelonae infection
     Dosage: 1 G, BID
     Route: 048
  9. PREDNISOLONE [Concomitant]
     Active Substance: PREDNISOLONE
     Indication: Rheumatoid arthritis
     Dosage: UNK
     Route: 065
  10. PREDNISOLONE [Concomitant]
     Active Substance: PREDNISOLONE
     Indication: Mycobacterium chelonae infection
  11. RIFAMPIN [Concomitant]
     Active Substance: RIFAMPIN
     Indication: Opportunistic infection prophylaxis
     Dosage: UNK
     Route: 065
  12. ETHAMBUTOL [Concomitant]
     Active Substance: ETHAMBUTOL HYDROCHLORIDE
     Indication: Opportunistic infection prophylaxis
     Dosage: UNK
     Route: 065

REACTIONS (3)
  - Bone marrow failure [Unknown]
  - Vertigo [Unknown]
  - Diarrhoea [Unknown]
